FAERS Safety Report 5269500-9 (Version None)
Quarter: 2007Q1

REPORT INFORMATION
  Report Type: 
  Country: None (occurrence: None)
  Receive Date: 20070320
  Receipt Date: 20070307
  Transmission Date: 20070707
  Serious: Yes (Other)
  Sender: FDA-Public Use
  Company Number: PHBS2007BR04413

PATIENT
  Age: 73 Year
  Sex: Female
  Weight: 60 kg

DRUGS (4)
  1. TRILEPTAL [Suspect]
     Dosage: 2400 MG/D
     Route: 048
     Dates: start: 20040101
  2. ALENDRONATE SODIUM [Concomitant]
     Indication: BONE DISORDER
     Dosage: 1 TABLET/D
     Route: 048
     Dates: start: 19900101
  3. ROCALTROL [Concomitant]
     Indication: BONE DISORDER
     Dosage: 1 TABLET/D
     Route: 048
     Dates: start: 19900101
  4. FOSAMAX [Concomitant]
     Indication: BONE DISORDER
     Dosage: 1 TABLET/D
     Route: 048
     Dates: start: 19900101

REACTIONS (1)
  - PETIT MAL EPILEPSY [None]
